FAERS Safety Report 4491815-2 (Version None)
Quarter: 2004Q4

REPORT INFORMATION
  Report Type: 
  Country: None (occurrence: None)
  Receive Date: 20041101
  Receipt Date: 20041014
  Transmission Date: 20050328
  Serious: Yes (Death)
  Sender: FDA-Public Use
  Company Number: CEL-2004-01872-ROC

PATIENT
  Age: 3 Year
  Sex: Male
  Weight: 11.4 kg

DRUGS (1)
  1. TUSSIONEX [Suspect]
     Dosage: 5ML Q12H PO
     Route: 048

REACTIONS (5)
  - BRAIN OEDEMA [None]
  - CARDIAC ARREST [None]
  - DRUG LEVEL INCREASED [None]
  - MEDICATION ERROR [None]
  - RESPIRATORY ARREST [None]
